FAERS Safety Report 6143329-1 (Version None)
Quarter: 2009Q2

REPORT INFORMATION
  Report Type: 
  Country: None (occurrence: None)
  Receive Date: 20090403
  Receipt Date: 20090324
  Transmission Date: 20091009
  Serious: Yes (Hospitalization)
  Sender: FDA-Public Use
  Company Number: B0566601A

PATIENT
  Age: 34 Year
  Sex: Female

DRUGS (3)
  1. DIPHENHYDRAMINE HCL [Suspect]
     Dosage: 1.5G PER DAY
  2. PROPRANOLOL [Suspect]
     Dosage: 400MG PER DAY
  3. FLUPHENAZINE DECANOATE [Concomitant]
     Dosage: 25MG PER DAY
     Route: 030

REACTIONS (22)
  - ABASIA [None]
  - AGITATION [None]
  - COGNITIVE DISORDER [None]
  - COORDINATION ABNORMAL [None]
  - DRUG ABUSE [None]
  - DRUG DEPENDENCE [None]
  - DRUG LEVEL INCREASED [None]
  - EXTRAPYRAMIDAL DISORDER [None]
  - FAECAL INCONTINENCE [None]
  - HALLUCINATION, AUDITORY [None]
  - HYPERTENSION [None]
  - HYPERTONIA [None]
  - INSOMNIA [None]
  - JUDGEMENT IMPAIRED [None]
  - NEUROLEPTIC MALIGNANT SYNDROME [None]
  - OEDEMA [None]
  - PSYCHOTIC DISORDER [None]
  - PYREXIA [None]
  - TACHYCARDIA [None]
  - TREMOR [None]
  - URINARY INCONTINENCE [None]
  - WITHDRAWAL SYNDROME [None]
